FAERS Safety Report 4623523-9 (Version None)
Quarter: 2005Q1

REPORT INFORMATION
  Report Type: 
  Country: None (occurrence: None)
  Receive Date: 20050329
  Receipt Date: 20050329
  Transmission Date: 20050727
  Serious: Yes (Death)
  Sender: FDA-Public Use
  Company Number: None

PATIENT
  Sex: Female
  Weight: 60 kg

DRUGS (2)
  1. SURGICAL SIMPLEX P BONE CEMENT [Suspect]
     Indication: HIP FRACTURE
     Dosage: TOPICAL
     Route: 061
     Dates: start: 20050322, end: 20050323
  2. SURGICAL SIMPLEX P BONE CEMENT [Suspect]
     Indication: SURGERY
     Dosage: TOPICAL
     Route: 061
     Dates: start: 20050322, end: 20050323

REACTIONS (3)
  - BLOOD PRESSURE IMMEASURABLE [None]
  - HYPOTENSION [None]
  - PULSE ABSENT [None]
